FAERS Safety Report 23874141 (Version 1)
Quarter: 2024Q2

REPORT INFORMATION
  Report Type: Report from Study
  Country: US (occurrence: US)
  Receive Date: 20240520
  Receipt Date: 20240520
  Transmission Date: 20240716
  Serious: Yes (Other)
  Sender: FDA-Public Use
  Company Number: US-MMM-E3TCA6NO

PATIENT
  Sex: Female

DRUGS (1)
  1. TOLVAPTAN [Suspect]
     Active Substance: TOLVAPTAN
     Indication: Congenital cystic kidney disease
     Dosage: UNK
     Route: 065
     Dates: start: 20190503

REACTIONS (3)
  - Anal ulcer [Recovered/Resolved]
  - Illness [Recovered/Resolved]
  - Norovirus infection [Recovered/Resolved]

NARRATIVE: CASE EVENT DATE: 20240213
